FAERS Safety Report 19211282 (Version 1)
Quarter: 2021Q2

REPORT INFORMATION
  Report Type: Spontaneous
  Country: US (occurrence: US)
  Receive Date: 20210504
  Receipt Date: 20210504
  Transmission Date: 20210717
  Serious: No
  Sender: FDA-Public Use
  Company Number: US-SA-2021SA145880

PATIENT
  Sex: Male

DRUGS (2)
  1. DUPIXENT [Suspect]
     Active Substance: DUPILUMAB
     Indication: ECZEMA
     Dosage: UNK UNK, TOTAL
     Dates: start: 202010, end: 202010
  2. DUPIXENT [Suspect]
     Active Substance: DUPILUMAB
     Dosage: 300 MG

REACTIONS (6)
  - Swollen tear duct [Unknown]
  - Swelling of eyelid [Unknown]
  - Eyelids pruritus [Unknown]
  - Lacrimation increased [Unknown]
  - Conjunctivitis [Unknown]
  - Dacryostenosis acquired [Unknown]
